FAERS Safety Report 6193409-X (Version None)
Quarter: 2009Q2

REPORT INFORMATION
  Report Type: 
  Country: None (occurrence: None)
  Receive Date: 20090518
  Receipt Date: 20080609
  Transmission Date: 20091009
  Serious: No
  Sender: FDA-Public Use
  Company Number: US-ABBOTT-08P-163-0455717-00

PATIENT
  Sex: Female
  Weight: 65.83 kg

DRUGS (2)
  1. AZMACORT [Suspect]
     Indication: ASTHMA
     Dosage: 3 PUFFS IN MORNING AND 3 PUFFS IN EVENING
     Route: 055
     Dates: start: 19880101
  2. ACETAMINOPHEN [Concomitant]
     Indication: ARTHRITIS

REACTIONS (1)
  - DRUG DOSE OMISSION [None]
